FAERS Safety Report 13525981 (Version 1)
Quarter: 2017Q2

REPORT INFORMATION
  Report Type: Spontaneous
  Country: CA (occurrence: CA)
  Receive Date: 20170509
  Receipt Date: 20170509
  Transmission Date: 20170830
  Serious: Yes (Other)
  Sender: FDA-Public Use
  Company Number: CA-009507513-1705CAN001380

PATIENT
  Age: 41 Year
  Sex: Female
  Weight: 113 kg

DRUGS (12)
  1. METFORMIN [Concomitant]
     Active Substance: METFORMIN HYDROCHLORIDE
     Route: 048
  2. VANCOMYCIN [Suspect]
     Active Substance: VANCOMYCIN
  3. FRAGMIN [Concomitant]
     Active Substance: DALTEPARIN SODIUM
     Route: 042
  4. CUBICIN [Suspect]
     Active Substance: DAPTOMYCIN
     Indication: ABSCESS
  5. GLICLAZIDE [Concomitant]
     Active Substance: GLICLAZIDE
     Route: 048
  6. CUBICIN [Suspect]
     Active Substance: DAPTOMYCIN
     Indication: STAPHYLOCOCCAL INFECTION
     Dosage: 900 MG, QD
     Route: 042
  7. CUBICIN [Suspect]
     Active Substance: DAPTOMYCIN
     Indication: SEPTIC EMBOLUS
  8. CUBICIN [Suspect]
     Active Substance: DAPTOMYCIN
     Indication: PULMONARY EMBOLISM
  9. ACETAMINOPHEN. [Concomitant]
     Active Substance: ACETAMINOPHEN
  10. CEFTRIAXONE. [Concomitant]
     Active Substance: CEFTRIAXONE
     Route: 030
  11. CUBICIN [Suspect]
     Active Substance: DAPTOMYCIN
     Indication: STAPHYLOCOCCAL BACTERAEMIA
  12. MORPHINE [Concomitant]
     Active Substance: MORPHINE

REACTIONS (3)
  - Blood creatine phosphokinase increased [Unknown]
  - Muscular weakness [Unknown]
  - Pain [Unknown]
